FAERS Safety Report 25043575 (Version 1)
Quarter: 2025Q1

REPORT INFORMATION
  Report Type: Spontaneous
  Country: US (occurrence: US)
  Receive Date: 20250306
  Receipt Date: 20250306
  Transmission Date: 20250408
  Serious: No
  Sender: ABBVIE
  Company Number: US-ABBVIE-6164945

PATIENT
  Age: 90 Year
  Sex: Female

DRUGS (1)
  1. LUMIGAN [Suspect]
     Active Substance: BIMATOPROST
     Indication: Product used for unknown indication
     Route: 047

REACTIONS (3)
  - Food allergy [Unknown]
  - Product packaging quantity issue [Not Recovered/Not Resolved]
  - Eye infection [Unknown]

NARRATIVE: CASE EVENT DATE: 20250201
